FAERS Safety Report 7278562-9 (Version None)
Quarter: 2011Q1

REPORT INFORMATION
  Report Type: 
  Country: None (occurrence: None)
  Receive Date: 20110207
  Receipt Date: 20110131
  Transmission Date: 20110831
  Serious: Yes (Death)
  Sender: FDA-Public Use
  Company Number: CHPA2011US01986

PATIENT
  Age: 27 Year
  Sex: Male

DRUGS (9)
  1. CLONAZEPAM [Suspect]
     Route: 048
  2. FUROSEMIDE [Suspect]
     Route: 048
  3. DOXAZOSIN [Suspect]
     Route: 048
  4. CARBIDOPA + LEVODOPA [Suspect]
     Route: 048
  5. IBUPROFEN [Suspect]
     Route: 048
  6. AMLODIPINE [Suspect]
     Route: 048
  7. QUETIAPINE [Suspect]
     Route: 048
  8. RISPERIDONE [Suspect]
     Route: 048
  9. HYDROCHLOROTHIAZIDE [Suspect]
     Route: 048

REACTIONS (1)
  - COMPLETED SUICIDE [None]
